FAERS Safety Report 7597102-8 (Version None)
Quarter: 2011Q3

REPORT INFORMATION
  Report Type: 
  Country: None (occurrence: None)
  Receive Date: 20110708
  Receipt Date: 20110628
  Transmission Date: 20111222
  Serious: Yes (Other)
  Sender: FDA-Public Use
  Company Number: CA-JNJFOC-20110613143

PATIENT
  Sex: Female
  Weight: 68 kg

DRUGS (4)
  1. PURINETHOL [Concomitant]
  2. PREVACID [Concomitant]
  3. REMICADE [Suspect]
     Indication: CROHN'S DISEASE
     Route: 042
  4. CLINDAMYCIN [Concomitant]

REACTIONS (2)
  - PNEUMONIA ASPIRATION [None]
  - CHOKING [None]
